FAERS Safety Report 13494890 (Version 1)
Quarter: 2017Q2

REPORT INFORMATION
  Report Type: Spontaneous
  Country: US (occurrence: US)
  Receive Date: 20170428
  Receipt Date: 20170428
  Transmission Date: 20170830
  Serious: No
  Sender: FDA-Public Use
  Company Number: US-PFIZER INC-2017181138

PATIENT
  Age: 21 Year
  Sex: Male

DRUGS (20)
  1. LEVOTHYROXINE. [Concomitant]
     Active Substance: LEVOTHYROXINE
     Dosage: 112 UG, DAILY
     Route: 048
     Dates: start: 20170417
  2. AMITIZA [Concomitant]
     Active Substance: LUBIPROSTONE
     Dosage: 24 UG, 2X/DAY (WITH FOOD AND WATER)
     Route: 048
     Dates: start: 20170209
  3. AMITIZA [Concomitant]
     Active Substance: LUBIPROSTONE
     Dosage: 24 UG, 2X/DAY (WITH FOOD AND WATER)
     Route: 048
     Dates: start: 20160118
  4. CLINDAMYCIN/BENZOYL PEROXIDE [Concomitant]
     Dosage: UNK UNK, 2X/DAY [CLINDAMYCIN 1 %]- [BENZOYL PEROXIDE 5 %] (IN THE MORNING AND EVENING)
     Route: 061
     Dates: start: 20160812
  5. CONCERTA [Concomitant]
     Active Substance: METHYLPHENIDATE HYDROCHLORIDE
     Dosage: 54 MG, 1X/DAY (TAKE 1 TABLET EVERY DAY IN THE MORNING)
     Route: 048
     Dates: start: 20170417
  6. GENOTROPIN [Suspect]
     Active Substance: SOMATROPIN
     Indication: GROWTH HORMONE DEFICIENCY
     Dosage: 2.4 MG, DAILY
     Route: 058
     Dates: start: 20160630
  7. ZANTAC [Concomitant]
     Active Substance: RANITIDINE HYDROCHLORIDE
     Dosage: 150 MG, 2X/DAY
     Route: 048
     Dates: start: 20110831
  8. LEVOTHYROXINE. [Concomitant]
     Active Substance: LEVOTHYROXINE
     Dosage: 100 UG, DAILY
  9. SYNTHROID [Concomitant]
     Active Substance: LEVOTHYROXINE SODIUM
     Dosage: 88 UG, DAILY
     Route: 048
     Dates: start: 20170111
  10. GENOTROPIN [Suspect]
     Active Substance: SOMATROPIN
     Dosage: 2.6 MG, DAILY
     Route: 058
     Dates: start: 20170418
  11. BENZTROPINE [Concomitant]
     Active Substance: BENZTROPINE
     Dosage: 2 MG, 3X/DAY (TAKE 1 TABLET BY EVERY MORNING, 1 IN THE AFTERNOON AND 2 TABLETS AT BEDTIME)
     Route: 048
  12. LITHIUM CARBONATE. [Concomitant]
     Active Substance: LITHIUM CARBONATE
     Dosage: 450 MG, 2X/DAY
     Route: 048
  13. SEROQUEL [Concomitant]
     Active Substance: QUETIAPINE FUMARATE
     Dosage: 400 MG, 1X/DAY (EVERY BEDTIME)
     Route: 048
     Dates: start: 20151125
  14. SYNTHROID [Concomitant]
     Active Substance: LEVOTHYROXINE SODIUM
     Dosage: 100 UG, DAILY
     Route: 048
  15. ANAFRANIL [Concomitant]
     Active Substance: CLOMIPRAMINE HYDROCHLORIDE
     Dosage: 75 MG, 1X/DAY (EVERY DAY AT BEDTIME)
     Route: 048
  16. EXCEDRIN MIGRAINE [Concomitant]
     Active Substance: ACETAMINOPHEN\ASPIRIN\CAFFEINE
     Dosage: 2 DF, AS NEEDED [ACETYLSALICYLIC ACID-250 MG]/[PARACETAMOL-250 MG]/[CAFFEINE-65 MG] (EVERY 4-6 HOUR)
     Route: 048
     Dates: start: 20130304
  17. CONCERTA [Concomitant]
     Active Substance: METHYLPHENIDATE HYDROCHLORIDE
     Dosage: 108 MG, 1X/DAY (TAKE 2 TABLET EVERY DAY IN THE MORNING)
     Route: 048
     Dates: start: 20170417
  18. DIFFERIN [Concomitant]
     Active Substance: ADAPALENE
     Dosage: UNK UNK, 1X/DAY (EVERY DAY TO THE AFFECTED AREA(S) AT BEDTIME)
     Route: 061
     Dates: start: 20160812
  19. HALOPERIDOL. [Concomitant]
     Active Substance: HALOPERIDOL
     Dosage: 5 MG, 3X/DAY (TAKE 1 TABLET Q AM 1 TAB IN AFTERNOON 3 TABS IN THE PM)
     Dates: start: 20160607
  20. ZINC. [Concomitant]
     Active Substance: ZINC
     Dosage: 50 MG, DAILY

REACTIONS (2)
  - Decreased appetite [Unknown]
  - Weight decreased [Unknown]
